FAERS Safety Report 14044796 (Version 1)
Quarter: 2017Q4

REPORT INFORMATION
  Report Type: Spontaneous
  Country: US (occurrence: US)
  Receive Date: 20171005
  Receipt Date: 20171005
  Transmission Date: 20180321
  Serious: No
  Sender: FDA-Public Use
  Company Number: US-FRESENIUS KABI-FK201708146

PATIENT
  Age: 41 Year
  Sex: Female
  Weight: 57.2 kg

DRUGS (2)
  1. ENTYVIO INJECTION [Concomitant]
     Indication: CROHN^S DISEASE
     Route: 041
     Dates: start: 201606
  2. SMOFLIPID [Suspect]
     Active Substance: FISH OIL\MEDIUM-CHAIN TRIGLYCERIDES\OLIVE OIL\SOYBEAN OIL
     Indication: CROHN^S DISEASE
     Route: 041
     Dates: start: 20170818

REACTIONS (1)
  - Blood creatinine increased [Not Recovered/Not Resolved]

NARRATIVE: CASE EVENT DATE: 201709
